FAERS Safety Report 5481932-2 (Version None)
Quarter: 2007Q4

REPORT INFORMATION
  Report Type: 
  Country: None (occurrence: None)
  Receive Date: 20071010
  Receipt Date: 20071004
  Transmission Date: 20080405
  Serious: Yes (Other)
  Sender: FDA-Public Use
  Company Number: JP-MERCK-0710USA02254

PATIENT
  Age: 62 Year
  Sex: Male

DRUGS (2)
  1. ZETIA [Suspect]
     Indication: HYPERCHOLESTEROLAEMIA
     Route: 048
     Dates: start: 20070710, end: 20071002
  2. LIPITOR [Concomitant]
     Route: 065
     Dates: end: 20071002

REACTIONS (1)
  - HEPATIC FUNCTION ABNORMAL [None]
